FAERS Safety Report 12833327 (Version 1)
Quarter: 2016Q4

REPORT INFORMATION
  Report Type: Spontaneous
  Country: US (occurrence: US)
  Receive Date: 20161010
  Receipt Date: 20161010
  Transmission Date: 20170207
  Serious: No
  Sender: FDA-Public Use
  Company Number: US-AMNEAL PHARMACEUTICALS-2016AMN00439

PATIENT
  Sex: Female
  Weight: 68.27 kg

DRUGS (1)
  1. DICLOFENAC SODIUM. [Suspect]
     Active Substance: DICLOFENAC SODIUM
     Indication: ARTHRALGIA
     Dosage: 2GMS TWO TIMES A DAY
     Dates: start: 20160621

REACTIONS (1)
  - Drug ineffective [Not Recovered/Not Resolved]
